FAERS Safety Report 10658596 (Version 1)
Quarter: 2014Q4

REPORT INFORMATION
  Report Type: Spontaneous
  Country: US (occurrence: None)
  Receive Date: 20141205
  Receipt Date: 20141205
  Transmission Date: 20150529
  Serious: Yes (Other)
  Sender: FDA-Public Use
  Company Number: USA-2014094738

PATIENT
  Age: 71 Year
  Sex: Male
  Weight: 81.65 kg

DRUGS (9)
  1. CITALOPRAM HBR (CITALOPRAM HYDROBROMIDE) [Concomitant]
  2. DOXAZOSIN MESYLATE (DOXAZOSIN MESILATE) [Concomitant]
  3. NEUPOGEN (FILGRASTIM) [Concomitant]
     Active Substance: FILGRASTIM
  4. HYDROCODONE-ACETAMINOPHEN (PARACETAMOL, HYDROCODONE) [Concomitant]
  5. POMALYST [Suspect]
     Active Substance: POMALIDOMIDE
     Indication: PLASMA CELL MYELOMA
     Route: 048
     Dates: start: 20140826
  6. LEVOFLOXACIN. [Concomitant]
     Active Substance: LEVOFLOXACIN
  7. OXYCONTIN [Concomitant]
     Active Substance: OXYCODONE HYDROCHLORIDE
  8. ONDANSETRON HCL (ONDANSETRON HYDROCHLORIDE) [Concomitant]
     Active Substance: ONDANSETRON HYDROCHLORIDE
  9. OXYCODONE HCL (OXYCODONE HYDROCHLORIDE) [Concomitant]
     Active Substance: OXYCODONE HYDROCHLORIDE

REACTIONS (1)
  - Pulmonary embolism [None]

NARRATIVE: CASE EVENT DATE: 2014
